FAERS Safety Report 9202312 (Version 2)
Quarter: 2013Q4

REPORT INFORMATION
  Report Type: Spontaneous
  Country: US (occurrence: US)
  Receive Date: 20130401
  Receipt Date: 20131126
  Transmission Date: 20140711
  Serious: Yes (Other)
  Sender: FDA-Public Use
  Company Number: US-BAYER-2013-038669

PATIENT
  Sex: Female

DRUGS (8)
  1. YAZ [Suspect]
  2. YASMIN [Suspect]
  3. NYSTATIN [Concomitant]
     Dosage: 50000 U, UNK
  4. GYNAZOLE [Concomitant]
     Dosage: 2 %, UNK
  5. METRONIDAZOLE [Concomitant]
     Dosage: 500 MG, UNK
  6. PROPOXYPHENE NAPSYLATE W/PARACETAMOL [Concomitant]
     Dosage: 100-650 TAB
  7. PROPOXYPHENE NAPSYLATE W/PARACETAMOL [Concomitant]
     Dosage: 100 1-2 Q 4-6H PRN
     Route: 048
  8. DARVOCET-N [Concomitant]
     Dosage: 100 1-2 Q4-6H PRN
     Route: 048

REACTIONS (6)
  - Cholecystitis [None]
  - Biliary dyskinesia [None]
  - Gallbladder injury [None]
  - Pain [None]
  - Injury [None]
  - Pain [None]
